FAERS Safety Report 9761572 (Version 2)
Quarter: 2014Q1

REPORT INFORMATION
  Report Type: Spontaneous
  Country: US (occurrence: US)
  Receive Date: 20131216
  Receipt Date: 20140303
  Transmission Date: 20141002
  Serious: Yes (Other)
  Sender: FDA-Public Use
  Company Number: US-TEVA-450222USA

PATIENT
  Age: 77 Year
  Sex: Female
  Weight: 88.08 kg

DRUGS (15)
  1. PROAIR HFA [Suspect]
     Indication: BRONCHITIS
     Dosage: 1-2 PUFFS EVERY 4 HOURS AS NEEDED
     Route: 055
     Dates: start: 201301, end: 2013
  2. PROAIR HFA [Suspect]
     Route: 055
     Dates: start: 201311, end: 20131207
  3. ASPIRIN [Concomitant]
     Indication: CARDIAC DISORDER
     Dosage: 81 MILLIGRAM DAILY;
     Route: 048
  4. LORATADINE [Concomitant]
     Indication: HYPERSENSITIVITY
     Dosage: 10 MILLIGRAM DAILY;
     Route: 048
  5. COUMADIN [Concomitant]
     Indication: ANTICOAGULANT THERAPY
     Dosage: 5 MG ON MON, WED, 2.5 MG ON OTHER DAYS
     Route: 048
  6. FERROUS SULFATE [Concomitant]
     Dosage: 325 MILLIGRAM DAILY;
     Route: 048
  7. LASIX [Concomitant]
     Indication: DIURETIC THERAPY
     Dosage: 40 MILLIGRAM DAILY;
     Route: 048
  8. KLOR CON [Concomitant]
     Indication: MINERAL SUPPLEMENTATION
     Dosage: 20 MILLIEQUIVALENTS DAILY;
     Route: 048
  9. FENOFIBRATE [Concomitant]
     Indication: BLOOD CHOLESTEROL INCREASED
     Dosage: 160 MILLIGRAM DAILY;
     Route: 048
  10. MAGNESIUM [Concomitant]
     Indication: CARDIAC DISORDER
     Dosage: 750 MILLIGRAM DAILY;
     Route: 048
  11. LOVASTATIN [Concomitant]
     Indication: BLOOD CHOLESTEROL INCREASED
     Dosage: 40 MILLIGRAM DAILY;
     Route: 048
  12. MULTIVITAMIN [Concomitant]
     Indication: VITAMIN SUPPLEMENTATION
     Route: 048
  13. PAXIL [Concomitant]
     Indication: DEPRESSION
     Dosage: 20 MILLIGRAM DAILY;
     Route: 048
  14. SIMETHICONE [Concomitant]
     Indication: FLATULENCE
     Dosage: 300 MILLIGRAM DAILY;
     Route: 048
  15. LEVOTHYROXINE [Concomitant]
     Indication: HYPOTHYROIDISM
     Dosage: 125 MICROGRAM DAILY;
     Route: 048

REACTIONS (6)
  - Convulsion [Recovered/Resolved]
  - Bruxism [Recovered/Resolved]
  - Dyspnoea [Not Recovered/Not Resolved]
  - Fatigue [Not Recovered/Not Resolved]
  - Dehydration [Unknown]
  - Asthenia [Unknown]
